FAERS Safety Report 5166418-7 (Version None)
Quarter: 2006Q4

REPORT INFORMATION
  Report Type: 
  Country: None (occurrence: None)
  Receive Date: 20061129
  Receipt Date: 20061116
  Transmission Date: 20070319
  Serious: Yes (Other)
  Sender: FDA-Public Use
  Company Number: 2006BI015081

PATIENT
  Sex: Female

DRUGS (1)
  1. AVONEX [Suspect]
     Indication: MULTIPLE SCLEROSIS
     Dosage: 30 UG; QW; IM
     Route: 030

REACTIONS (9)
  - BRAIN NEOPLASM [None]
  - COLITIS ULCERATIVE [None]
  - CONDITION AGGRAVATED [None]
  - DYSPHAGIA [None]
  - HERPES ZOSTER [None]
  - INFLUENZA [None]
  - NASOPHARYNGEAL DISORDER [None]
  - OVARIAN CYST [None]
  - PRODUCTIVE COUGH [None]
